FAERS Safety Report 17121419 (Version 3)
Quarter: 2019Q4

REPORT INFORMATION
  Report Type: Spontaneous
  Country: FR (occurrence: FR)
  Receive Date: 20191206
  Receipt Date: 20191226
  Transmission Date: 20200122
  Serious: Yes (Hospitalization)
  Sender: FDA-Public Use
  Company Number: FR-MYLANLABS-2019M1119289

PATIENT
  Age: 54 Year
  Sex: Male
  Weight: 87.5 kg

DRUGS (37)
  1. REMIFENTANIL MYLAN [Suspect]
     Active Substance: REMIFENTANIL
     Indication: ANAESTHESIA
     Dosage: 796 MICROGRAM, QD
     Route: 042
     Dates: start: 20190515, end: 20190515
  2. OCTREOTIDE. [Suspect]
     Active Substance: OCTREOTIDE
     Dosage: 1 DOSAGE FORM, QD
     Route: 042
     Dates: start: 20190605, end: 20190607
  3. ACTISKENAN [Suspect]
     Active Substance: MORPHINE SULFATE
     Indication: PAIN
     Dosage: 15 MILLIGRAM, QD
     Route: 048
     Dates: start: 20190629, end: 20190705
  4. VITAMIN K [Suspect]
     Active Substance: PHYTONADIONE
     Indication: PROTHROMBIN TIME RATIO DECREASED
     Dosage: 20 MILLIGRAM, QD
     Route: 042
     Dates: start: 20190604, end: 20190609
  5. PIPERACILLIN AND TAZOBACTAM [Suspect]
     Active Substance: PIPERACILLIN SODIUM\TAZOBACTAM SODIUM
     Indication: SEPSIS
     Dosage: 12 GRAM, QD
     Route: 042
     Dates: start: 20190406, end: 20190607
  6. PIPERACILLIN AND TAZOBACTAM [Suspect]
     Active Substance: PIPERACILLIN SODIUM\TAZOBACTAM SODIUM
     Dosage: 12 GRAM, QD
     Route: 042
     Dates: start: 20190614, end: 20190624
  7. PANTOPRAZOLE MYLAN 20 MG, COMPRIM? GASTRO-R?SISTANT [Suspect]
     Active Substance: PANTOPRAZOLE SODIUM
     Indication: PROPHYLAXIS AGAINST GASTROINTESTINAL ULCER
     Dosage: 20 MG LE MATIN
     Route: 048
     Dates: start: 20190505
  8. PROPOFOL MYLAN 20 MG/ML, ?MULSION INJECTABLE (IV) [Suspect]
     Active Substance: PROPOFOL
     Indication: ANAESTHESIA
     Dosage: 1088 MILLIGRAM, QD
     Route: 042
     Dates: start: 20190515, end: 20190515
  9. MAGNESIUM [Suspect]
     Active Substance: MAGNESIUM
     Indication: MAGNESIUM DEFICIENCY
     Dosage: 1 DOSAGE FORM, QD
     Route: 065
  10. AMIKACINE MYLAN [Suspect]
     Active Substance: AMIKACIN
     Indication: SEPSIS
     Dosage: 1500 MILLIGRAM, QD
     Route: 042
     Dates: start: 20190604, end: 20190604
  11. PROPOFOL MYLAN 20 MG/ML, ?MULSION INJECTABLE (IV) [Suspect]
     Active Substance: PROPOFOL
     Indication: PAIN
  12. LOVENOX [Suspect]
     Active Substance: ENOXAPARIN SODIUM
     Indication: THROMBOSIS PROPHYLAXIS
     Dosage: 4000 INTERNATIONAL UNIT, QD
     Route: 058
     Dates: start: 20190614
  13. COLCHICINE OPOCALCIUM [Suspect]
     Active Substance: COLCHICINE
     Indication: GOUT
     Dosage: 2 MILLIGRAM, QD
     Route: 048
     Dates: start: 20190615, end: 20190617
  14. TINZAPARIN SODIUM [Suspect]
     Active Substance: TINZAPARIN SODIUM
     Indication: THROMBOSIS
     Dosage: 17000 INTERNATIONAL UNIT, QD
     Route: 058
  15. KARDEGIC [Concomitant]
     Active Substance: ASPIRIN DL-LYSINE
     Indication: ISCHAEMIC CARDIOMYOPATHY
     Dosage: 0-1-0
     Route: 048
  16. VANCOMYCINE SANDOZ [Suspect]
     Active Substance: VANCOMYCIN
     Indication: SEPSIS
     Dosage: 3080 MILLIGRAM, QD
     Route: 042
     Dates: start: 20190605, end: 20190628
  17. NEFOPAM MYLAN 20 MG/2 ML, SOLUTION INJECTABLE [Suspect]
     Active Substance: NEFOPAM HYDROCHLORIDE
     Indication: PAIN
     Dosage: 20 MILLIGRAM
     Route: 042
     Dates: start: 20190505
  18. NEFOPAM MYLAN 20 MG/2 ML, SOLUTION INJECTABLE [Suspect]
     Active Substance: NEFOPAM HYDROCHLORIDE
     Dosage: 20 MILLIGRAM
     Route: 042
     Dates: start: 20190515
  19. AMIKACINE MYLAN [Suspect]
     Active Substance: AMIKACIN
     Dosage: 1500 MILLIGRAM, QD
     Route: 065
     Dates: start: 20190604, end: 20190604
  20. INNOHEP [Suspect]
     Active Substance: TINZAPARIN SODIUM
     Indication: THROMBOSIS
     Dosage: 17000 INTERNATIONAL UNIT, QD
     Route: 058
     Dates: start: 20190505, end: 20190520
  21. TOPALGIC                           /00599202/ [Suspect]
     Active Substance: TRAMADOL HYDROCHLORIDE
     Indication: PAIN
     Dosage: 200 MILLIGRAM, QD
     Route: 042
     Dates: start: 20190515, end: 20190515
  22. CETIRIZINE [Suspect]
     Active Substance: CETIRIZINE HYDROCHLORIDE
     Indication: ALLERGY PROPHYLAXIS
     Dosage: UNK
     Route: 065
     Dates: start: 20190606
  23. PIPERACILLIN AND TAZOBACTAM [Suspect]
     Active Substance: PIPERACILLIN SODIUM\TAZOBACTAM SODIUM
     Dosage: 1-1-1
     Route: 042
     Dates: start: 20190604, end: 20190607
  24. MAG 2                              /00454301/ [Suspect]
     Active Substance: MAGNESIUM CARBONATE
     Indication: MAGNESIUM DEFICIENCY
     Dosage: 2-0-0
     Route: 048
     Dates: start: 20190618, end: 20190705
  25. LOVENOX [Suspect]
     Active Substance: ENOXAPARIN SODIUM
     Dosage: 4000 INTERNATIONAL UNIT, QD
     Route: 058
  26. POLARAMINE [Suspect]
     Active Substance: DEXCHLORPHENIRAMINE MALEATE
     Indication: ALLERGY PROPHYLAXIS
     Dosage: 5 MILLIGRAM, QD
     Route: 042
     Dates: start: 20190606, end: 20190606
  27. DAPTOMYCIN ACCORD [Suspect]
     Active Substance: DAPTOMYCIN
     Indication: SEPTIC SHOCK
     Dosage: 850 MILLIGRAM, QD
     Route: 042
     Dates: start: 20190701, end: 20190704
  28. OROZAMUDOL 50 MG, COMPRIM? ORODISPERSIBLE [Suspect]
     Active Substance: TRAMADOL
     Indication: PAIN
     Dosage: 50 MILLIGRAM, PRN (NUMBER OF INTERVALS IN A DAY  1)
     Route: 048
     Dates: start: 20190520, end: 20190602
  29. CEFTRIAXONE MYLAN 1 G, POUDRE POUR SOLUTION INJECTABLE [Suspect]
     Active Substance: CEFTRIAXONE
     Indication: SEPSIS
     Dosage: 1 GRAM, QD
     Route: 042
     Dates: start: 20190607, end: 20190613
  30. METHYLPREDNISOLONE MYLAN [Suspect]
     Active Substance: METHYLPREDNISOLONE
     Indication: ALLERGY PROPHYLAXIS
     Dosage: 60 MILLIGRAM, QD
     Route: 042
     Dates: start: 20190606, end: 20190606
  31. OCTREOTIDE. [Suspect]
     Active Substance: OCTREOTIDE
     Indication: GASTROINTESTINAL HAEMORRHAGE
     Dosage: 600 MICROGRAM, QD
     Route: 042
     Dates: start: 20190605, end: 20190607
  32. VANCOMYCINE SANDOZ [Suspect]
     Active Substance: VANCOMYCIN
     Indication: PAIN
  33. DOLIPRANE [Concomitant]
     Active Substance: ACETAMINOPHEN
     Indication: PAIN
     Dosage: 1 GRAM, UNK
     Route: 048
  34. OROZAMUDOL 50 MG, COMPRIM? ORODISPERSIBLE [Suspect]
     Active Substance: TRAMADOL
     Dosage: UNK
     Route: 048
     Dates: start: 20190520, end: 20190602
  35. CETIRIZINE [Suspect]
     Active Substance: CETIRIZINE HYDROCHLORIDE
     Indication: ALLERGY PROPHYLAXIS
     Dosage: 0-0-1
     Route: 048
     Dates: start: 20190606
  36. KONAKION MM [Suspect]
     Active Substance: PHYTONADIONE
     Indication: PROTHROMBIN TIME RATIO DECREASED
     Dosage: 20 MILLIGRAM, QD
     Route: 042
     Dates: start: 20190604, end: 20190609
  37. DOLIPRANE [Concomitant]
     Active Substance: ACETAMINOPHEN
     Dosage: UNK
     Route: 048

REACTIONS (1)
  - Drug reaction with eosinophilia and systemic symptoms [Not Recovered/Not Resolved]

NARRATIVE: CASE EVENT DATE: 20190701
